FAERS Safety Report 18668201 (Version 1)
Quarter: 2020Q4

REPORT INFORMATION
  Report Type: Spontaneous
  Country: US (occurrence: US)
  Receive Date: 20201228
  Receipt Date: 20201228
  Transmission Date: 20210114
  Serious: No
  Sender: FDA-Public Use
  Company Number: US-LUPIN PHARMACEUTICALS INC.-2020-02790

PATIENT
  Age: 51 Year
  Sex: Female

DRUGS (2)
  1. DAPSONE. [Concomitant]
     Active Substance: DAPSONE
     Indication: LEPROMATOUS LEPROSY
     Dosage: UNK
     Route: 065
  2. MINOCYCLINE [Suspect]
     Active Substance: MINOCYCLINE HYDROCHLORIDE
     Indication: LEPROMATOUS LEPROSY
     Dosage: UNK
     Route: 065

REACTIONS (1)
  - Skin hyperpigmentation [Unknown]
